FAERS Safety Report 25615471 (Version 2)
Quarter: 2025Q3

REPORT INFORMATION
  Report Type: Spontaneous
  Country: CA (occurrence: CA)
  Receive Date: 20250729
  Receipt Date: 20250829
  Transmission Date: 20251021
  Serious: Yes (Other)
  Sender: ABBVIE
  Company Number: CA-LUNDBECK-DKLU4017351

PATIENT
  Age: 18 Year

DRUGS (1)
  1. ESCITALOPRAM [Suspect]
     Active Substance: ESCITALOPRAM OXALATE
     Indication: Anxiety disorder
     Dosage: STRENGTH: 10MG
     Route: 048

REACTIONS (2)
  - Anxiety [Recovered/Resolved]
  - Product substitution issue [Recovered/Resolved]
